FAERS Safety Report 21694270 (Version 3)
Quarter: 2023Q1

REPORT INFORMATION
  Report Type: Spontaneous
  Country: US (occurrence: US)
  Receive Date: 20221207
  Receipt Date: 20230111
  Transmission Date: 20230418
  Serious: Yes (Other)
  Sender: FDA-Public Use
  Company Number: US-PFIZER INC-PV202200117514

PATIENT
  Age: 80 Year
  Sex: Female

DRUGS (3)
  1. IBRANCE [Suspect]
     Active Substance: PALBOCICLIB
     Dosage: 125 MG
  2. IBRANCE [Suspect]
     Active Substance: PALBOCICLIB
     Dosage: 100 MG
     Dates: start: 202301
  3. FULVESTRANT [Suspect]
     Active Substance: FULVESTRANT
     Dosage: UNK

REACTIONS (4)
  - Pneumonia [Unknown]
  - White blood cell count decreased [Unknown]
  - Bone pain [Unknown]
  - Product dispensing error [Unknown]
